FAERS Safety Report 20430729 (Version 1)
Quarter: 2022Q1

REPORT INFORMATION
  Report Type: Spontaneous
  Country: US (occurrence: None)
  Receive Date: 20220203
  Receipt Date: 20220203
  Transmission Date: 20220423
  Serious: Yes (Hospitalization)
  Sender: FDA-Public Use
  Company Number: None

PATIENT
  Age: 56 Year
  Sex: Female

DRUGS (11)
  1. HUMIRA [Suspect]
     Active Substance: ADALIMUMAB
     Indication: Rheumatoid arthritis
     Dosage: OTHER QUANTITY : 40 / 0.8 MG/ML;?FREQUENCY : AS DIRECTED;?
     Route: 058
     Dates: start: 20210107
  2. HUMIRA KIT [Concomitant]
  3. HYDROXYCHLOR TAB [Concomitant]
  4. IBUPROFEN TAB [Concomitant]
  5. OMEPRAZOLE TAB [Concomitant]
  6. PAROXETINE TAB [Concomitant]
  7. PAXIL TAB [Concomitant]
  8. PLAQUENIL [Concomitant]
     Active Substance: HYDROXYCHLOROQUINE SULFATE
  9. PREDNISONE [Concomitant]
     Active Substance: PREDNISONE
  10. SULFASALAZINE [Concomitant]
     Active Substance: SULFASALAZINE
  11. TYLENOL TAB [Concomitant]

REACTIONS (2)
  - Sepsis [None]
  - Therapy interrupted [None]

NARRATIVE: CASE EVENT DATE: 20220122
